FAERS Safety Report 7939999-5 (Version None)
Quarter: 2011Q4

REPORT INFORMATION
  Report Type: 
  Country: None (occurrence: None)
  Receive Date: 20111125
  Receipt Date: 20111122
  Transmission Date: 20120403
  Serious: Yes (Other)
  Sender: FDA-Public Use
  Company Number: US-PFIZER INC-2011286156

PATIENT
  Sex: Female
  Weight: 69.4 kg

DRUGS (2)
  1. PREMPRO [Suspect]
     Indication: HOT FLUSH
     Dosage: 0.45/1.5 MG, 1X/DAY
     Route: 048
     Dates: start: 20111001, end: 20111122
  2. PREMPRO [Suspect]
     Indication: INSOMNIA

REACTIONS (4)
  - HYPERTENSION [None]
  - FEELING ABNORMAL [None]
  - MYOCARDIAL INFARCTION [None]
  - LOSS OF CONSCIOUSNESS [None]
